FAERS Safety Report 6884750-3 (Version None)
Quarter: 2010Q3

REPORT INFORMATION
  Report Type: 
  Country: None (occurrence: None)
  Receive Date: 20100729
  Receipt Date: 20070817
  Transmission Date: 20110219
  Serious: No
  Sender: FDA-Public Use
  Company Number: US-PFIZER INC-2007068135

PATIENT
  Age: 65 Year
  Sex: Female
  Weight: 61.23 kg

DRUGS (1)
  1. CELEBREX [Suspect]
     Indication: RHEUMATOID ARTHRITIS
     Route: 048

REACTIONS (3)
  - DRUG INEFFECTIVE [None]
  - JOINT SWELLING [None]
  - LIMB DISCOMFORT [None]
